FAERS Safety Report 19444094 (Version 1)
Quarter: 2021Q2

REPORT INFORMATION
  Report Type: Report from Study
  Country: CR (occurrence: CR)
  Receive Date: 20210621
  Receipt Date: 20210621
  Transmission Date: 20210717
  Serious: Yes (Life-Threatening, Hospitalization, Other)
  Sender: FDA-Public Use
  Company Number: NVSC2021CR138358

PATIENT
  Age: 54 Year
  Sex: Female
  Weight: 76 kg

DRUGS (14)
  1. DEXAMETHASONE. [Concomitant]
     Active Substance: DEXAMETHASONE
     Indication: PRODUCT USED FOR UNKNOWN INDICATION
     Dosage: UNK
     Route: 045
  2. LORATADINE. [Concomitant]
     Active Substance: LORATADINE
     Indication: PRODUCT USED FOR UNKNOWN INDICATION
     Dosage: UNK
     Route: 065
  3. IRBESARTAN. [Concomitant]
     Active Substance: IRBESARTAN
     Indication: PRODUCT USED FOR UNKNOWN INDICATION
     Dosage: 2 DF (150 MG)
     Route: 065
     Dates: start: 202104
  4. MONTELUKAST [Suspect]
     Active Substance: MONTELUKAST SODIUM
     Indication: PRODUCT USED FOR UNKNOWN INDICATION
     Dosage: UNK
     Route: 065
  5. PREDNISOLONE. [Concomitant]
     Active Substance: PREDNISOLONE
     Indication: PRODUCT USED FOR UNKNOWN INDICATION
     Dosage: UNK
     Route: 065
  6. ALOE [Concomitant]
     Active Substance: ALOE
     Indication: GASTROOESOPHAGEAL REFLUX DISEASE
     Dosage: UNK (EMPTY STOMACH)
     Route: 065
  7. CLARITHROMYCIN. [Concomitant]
     Active Substance: CLARITHROMYCIN
     Indication: PRODUCT USED FOR UNKNOWN INDICATION
     Dosage: UNK
     Route: 065
  8. XOLAIR [Suspect]
     Active Substance: OMALIZUMAB
     Indication: ASTHMA
     Dosage: 525 MG, QMO
     Route: 065
     Dates: start: 20191205
  9. HYDROCHLOROTHIAZIDE. [Concomitant]
     Active Substance: HYDROCHLOROTHIAZIDE
     Indication: PRODUCT USED FOR UNKNOWN INDICATION
     Dosage: 1 DF, QD
     Route: 065
     Dates: start: 202104
  10. THEOPHYLLINE [Concomitant]
     Active Substance: THEOPHYLLINE ANHYDROUS
     Indication: PRODUCT USED FOR UNKNOWN INDICATION
     Dosage: UNK
     Route: 065
  11. PROTON [Concomitant]
     Active Substance: OMEPRAZOLE
     Indication: GASTROOESOPHAGEAL REFLUX DISEASE
     Dosage: UNK (EVERY MORNING ON AN EMPTY STOMACH)
     Route: 065
  12. XOLAIR [Suspect]
     Active Substance: OMALIZUMAB
     Indication: BRONCHOSPASM
     Dosage: 150 MG, TWICE A MONTH
     Route: 065
  13. XOLAIR [Suspect]
     Active Substance: OMALIZUMAB
     Dosage: UNK (EVERY 15 DAYS)
     Route: 065
  14. MOMETASONE [Concomitant]
     Active Substance: MOMETASONE
     Indication: PRODUCT USED FOR UNKNOWN INDICATION
     Dosage: UNK (NEBULIZATION)
     Route: 055

REACTIONS (6)
  - Asthmatic crisis [Unknown]
  - Menstruation irregular [Unknown]
  - Arthralgia [Unknown]
  - Weight increased [Unknown]
  - Pain [Unknown]
  - Myalgia [Unknown]

NARRATIVE: CASE EVENT DATE: 202011
